FAERS Safety Report 12093035 (Version 1)
Quarter: 2016Q1

REPORT INFORMATION
  Report Type: Spontaneous
  Country: US (occurrence: None)
  Receive Date: 20160218
  Receipt Date: 20160218
  Transmission Date: 20160526
  Serious: Yes (Disabling)
  Sender: FDA-Public Use
  Company Number: None

PATIENT
  Age: 64 Year
  Sex: Female
  Weight: 74.84 kg

DRUGS (11)
  1. RANEXA [Suspect]
     Active Substance: RANOLAZINE
     Indication: ARTERIOSPASM CORONARY
     Route: 048
     Dates: end: 20150424
  2. STOOL SOFTENESS [Concomitant]
  3. ASPIRIN. [Concomitant]
     Active Substance: ASPIRIN
  4. SERTRALINE [Concomitant]
     Active Substance: SERTRALINE HYDROCHLORIDE
  5. MACUHEALTH [Concomitant]
  6. COQ10 [Concomitant]
     Active Substance: UBIDECARENONE
  7. NORCO [Concomitant]
     Active Substance: ACETAMINOPHEN\HYDROCODONE BITARTRATE
  8. RANEXA [Suspect]
     Active Substance: RANOLAZINE
     Indication: ANGINA PECTORIS
     Route: 048
     Dates: end: 20150424
  9. VALSARTAN. [Concomitant]
     Active Substance: VALSARTAN
  10. AMLODIPINE BESYLATE. [Concomitant]
     Active Substance: AMLODIPINE BESYLATE
  11. VITAMIN D [Concomitant]
     Active Substance: CHOLECALCIFEROL

REACTIONS (1)
  - Retinal disorder [None]

NARRATIVE: CASE EVENT DATE: 201504
